FAERS Safety Report 9377857 (Version 1)
Quarter: 2013Q3

REPORT INFORMATION
  Report Type: Spontaneous
  Country: US (occurrence: US)
  Receive Date: 20130701
  Receipt Date: 20130701
  Transmission Date: 20140515
  Serious: Yes (Hospitalization)
  Sender: FDA-Public Use
  Company Number: US-BAYER-2013-079948

PATIENT
  Age: 29 Year
  Sex: Female

DRUGS (10)
  1. YASMIN [Suspect]
  2. OCELLA [Suspect]
  3. CYCLOSPORINE [Concomitant]
     Dosage: 100 MG, UNK
  4. MERCAPTOPURINE [Concomitant]
     Dosage: 50 MG, UNK
  5. HYDROCORTISONE [Concomitant]
     Dosage: 100MG/60ML
  6. CEFDINIR [Concomitant]
     Dosage: 300 MG, UNK
  7. ACETAMINOPHEN W/CODEINE [Concomitant]
     Dosage: 300MG-30MG
  8. METRONIDAZOLE [Concomitant]
     Dosage: 250 MG, UNK
  9. PREDNISONE [Concomitant]
     Dosage: 5 MG, UNK
  10. FERROUS SULFATE [Concomitant]

REACTIONS (2)
  - Pulmonary embolism [None]
  - Atrial thrombosis [None]
